FAERS Safety Report 4949321-4 (Version None)
Quarter: 2006Q1

REPORT INFORMATION
  Report Type: 
  Country: None (occurrence: None)
  Receive Date: 20060315
  Receipt Date: 20060308
  Transmission Date: 20060701
  Serious: Yes (Hospitalization)
  Sender: FDA-Public Use
  Company Number: HQ3679209AUG2002

PATIENT
  Age: 50 Year
  Sex: Male
  Weight: 74.91 kg

DRUGS (4)
  1. MYLOTARG [Suspect]
     Indication: ACUTE MYELOID LEUKAEMIA
     Dosage: 16.4 MG 1X PER 1 DAY, INTRAVENOUS; 17 MG 1X PER 1 DAY, INTRAVENOUS
     Route: 042
     Dates: start: 20020723, end: 20020723
  2. MYLOTARG [Suspect]
     Indication: ACUTE MYELOID LEUKAEMIA
     Dosage: 16.4 MG 1X PER 1 DAY, INTRAVENOUS; 17 MG 1X PER 1 DAY, INTRAVENOUS
     Route: 042
     Dates: start: 20020806, end: 20020806
  3. AMPHOTERICIN B [Concomitant]
  4. ACETAMINOPHEN [Concomitant]

REACTIONS (6)
  - ASTHENIA [None]
  - FATIGUE [None]
  - FEBRILE NEUTROPENIA [None]
  - INFUSION RELATED REACTION [None]
  - PAIN [None]
  - WHITE BLOOD CELL COUNT DECREASED [None]
